FAERS Safety Report 8830759 (Version 1)
Quarter: 2012Q4

REPORT INFORMATION
  Report Type: 
  Country: GB (occurrence: GB)
  Receive Date: 20121009
  Receipt Date: 20121009
  Transmission Date: 20130627
  Serious: Yes (Other)
  Sender: FDA-Public Use
  Company Number: GB-PFIZER INC-2012245845

PATIENT
  Age: 51 Year
  Sex: Male
  Weight: 64 kg

DRUGS (1)
  1. CHAMPIX [Suspect]
     Dates: start: 20120709

REACTIONS (3)
  - Drug eruption [Unknown]
  - Acute sinusitis [Recovering/Resolving]
  - Odynophagia [Unknown]
